FAERS Safety Report 8175526-8 (Version None)
Quarter: 2012Q1

REPORT INFORMATION
  Report Type: 
  Country: None (occurrence: None)
  Receive Date: 20120229
  Receipt Date: 20120227
  Transmission Date: 20120608
  Serious: Yes (Other)
  Sender: FDA-Public Use
  Company Number: US-BAYER-2012-019492

PATIENT

DRUGS (2)
  1. ALEVE (CAPLET) [Suspect]
     Route: 048
  2. ALLEGRA [Concomitant]

REACTIONS (7)
  - BLOOD PRESSURE INCREASED [None]
  - HYPERSENSITIVITY [None]
  - LIP SWELLING [None]
  - RASH [None]
  - PRURITUS [None]
  - EYE SWELLING [None]
  - VISION BLURRED [None]
